FAERS Safety Report 9194161 (Version 1)
Quarter: 2013Q1

REPORT INFORMATION
  Report Type: Spontaneous
  Country: US (occurrence: US)
  Receive Date: 20130327
  Receipt Date: 20130327
  Transmission Date: 20140127
  Serious: No
  Sender: FDA-Public Use
  Company Number: US-ASTRAZENECA-2013SE16162

PATIENT
  Sex: Female

DRUGS (2)
  1. CRESTOR [Suspect]
     Dosage: UNK
     Route: 048
  2. LIPITOR [Suspect]
     Route: 065

REACTIONS (2)
  - Muscle spasms [Unknown]
  - Intentional drug misuse [Unknown]
